FAERS Safety Report 13986847 (Version 1)
Quarter: 2017Q3

REPORT INFORMATION
  Report Type: Report from Study
  Country: CO (occurrence: CO)
  Receive Date: 20170919
  Receipt Date: 20170919
  Transmission Date: 20171128
  Serious: Yes (Hospitalization, Other)
  Sender: FDA-Public Use
  Company Number: CO-JNJFOC-20170915069

PATIENT
  Age: 33 Year
  Sex: Male
  Weight: 55 kg

DRUGS (1)
  1. SIMPONI [Suspect]
     Active Substance: GOLIMUMAB
     Indication: ANKYLOSING SPONDYLITIS
     Route: 058
     Dates: start: 20150706, end: 20170807

REACTIONS (1)
  - Testicular abscess [Recovering/Resolving]

NARRATIVE: CASE EVENT DATE: 20170904
